FAERS Safety Report 13764492 (Version 13)
Quarter: 2019Q3

REPORT INFORMATION
  Report Type: Report from Study
  Country: JP (occurrence: JP)
  Receive Date: 20170718
  Receipt Date: 20190716
  Transmission Date: 20191004
  Serious: Yes (Death, Hospitalization, Other)
  Sender: FDA-Public Use
  Company Number: JP-INCYTE CORPORATION-2017IN005474

PATIENT

DRUGS (7)
  1. JAKAVI [Suspect]
     Active Substance: RUXOLITINIB
     Indication: POLYCYTHAEMIA VERA
     Dosage: 5 MG, BID
     Route: 048
     Dates: start: 20160511, end: 20160615
  2. JAKAVI [Suspect]
     Active Substance: RUXOLITINIB
     Dosage: 10 MG, BID
     Route: 048
     Dates: start: 20160616
  3. GLACTIV [Concomitant]
     Active Substance: SITAGLIPTIN
     Indication: POLYCYTHAEMIA VERA
     Dosage: 50 MG, UNK
     Route: 048
  4. KETOTIFEN [Concomitant]
     Active Substance: KETOTIFEN
     Indication: POLYCYTHAEMIA VERA
     Dosage: 2 MG, UNK
     Route: 048
     Dates: end: 20160531
  5. BAYASPIRIN [Concomitant]
     Active Substance: ASPIRIN
     Indication: POLYCYTHAEMIA VERA
     Dosage: 100 MG, UNK
     Route: 048
  6. JAKAVI [Suspect]
     Active Substance: RUXOLITINIB
     Dosage: 10 MG, QD
     Route: 048
     Dates: start: 20160616, end: 20181018
  7. AMLODIN [Concomitant]
     Active Substance: AMLODIPINE BESYLATE
     Indication: POLYCYTHAEMIA VERA
     Dosage: 10 MG, UNK
     Route: 048

REACTIONS (4)
  - Pneumonia pneumococcal [Recovered/Resolved]
  - Pyrexia [Recovered/Resolved]
  - Nasopharyngitis [Recovered/Resolved]
  - Small cell lung cancer [Fatal]

NARRATIVE: CASE EVENT DATE: 20170415
